FAERS Safety Report 6929179-4 (Version None)
Quarter: 2010Q3

REPORT INFORMATION
  Report Type: 
  Country: None (occurrence: None)
  Receive Date: 20100817
  Receipt Date: 20100809
  Transmission Date: 20110219
  Serious: Yes (Hospitalization)
  Sender: FDA-Public Use
  Company Number: BE-ABBOTT-10P-013-0640732-00

PATIENT
  Sex: Male

DRUGS (1)
  1. LEUPROLIDE ACETATE [Suspect]
     Indication: PRODUCT USED FOR UNKNOWN INDICATION
     Dates: start: 20091012

REACTIONS (12)
  - ABDOMINAL PAIN UPPER [None]
  - APHONIA [None]
  - ARRHYTHMIA [None]
  - ASTHENIA [None]
  - BLOOD PRESSURE DECREASED [None]
  - DYSURIA [None]
  - OBSTRUCTIVE UROPATHY [None]
  - PHARYNGEAL HAEMORRHAGE [None]
  - PROSTATIC SPECIFIC ANTIGEN INCREASED [None]
  - PROSTATOMEGALY [None]
  - VOCAL CORD CYST [None]
  - WEIGHT DECREASED [None]
